FAERS Safety Report 9321694 (Version 3)
Quarter: 2014Q2

REPORT INFORMATION
  Report Type: Report from Study
  Country: US (occurrence: US)
  Receive Date: 20130531
  Receipt Date: 20140610
  Transmission Date: 20141212
  Serious: Yes (Hospitalization, Other)
  Sender: FDA-Public Use
  Company Number: US-EISAI INC-E2007-01137-CLI-US

PATIENT
  Age: 26 Year
  Sex: Male
  Weight: 78.5 kg

DRUGS (10)
  1. E2007 (PERAMPANEL) [Suspect]
     Indication: GENERALISED TONIC-CLONIC SEIZURE
     Dosage: PLACEBO
     Route: 048
     Dates: start: 20120822, end: 20121218
  2. E2007 (PERAMPANEL) [Suspect]
     Dosage: CONVERSION PHASE
     Route: 048
     Dates: start: 20121219, end: 20130129
  3. E2007 (PERAMPANEL) [Suspect]
     Dosage: OPEN LABEL EXTENSION
     Route: 048
     Dates: start: 20130130, end: 20130227
  4. E2007 (PERAMPANEL) [Suspect]
     Dosage: OPEN LABEL EXTENSION
     Route: 048
     Dates: start: 20130228, end: 20130417
  5. CLONAZEPAM [Concomitant]
     Indication: CONVULSION
     Route: 048
     Dates: start: 20080826, end: 201305
  6. CLONAZEPAM [Concomitant]
     Route: 048
     Dates: start: 201305
  7. LAMICTAL [Concomitant]
     Indication: CONVULSION
     Route: 048
     Dates: start: 20070417, end: 201304
  8. LAMICTAL [Concomitant]
     Route: 048
     Dates: start: 201304
  9. PHENOBARBITAL [Concomitant]
     Indication: CONVULSION
     Route: 048
     Dates: start: 20070416, end: 201304
  10. PHENOBARBITAL [Concomitant]
     Route: 048
     Dates: start: 201304

REACTIONS (2)
  - Depression [Recovered/Resolved]
  - Suicide attempt [Recovered/Resolved]
